FAERS Safety Report 20628517 (Version 1)
Quarter: 2022Q1

REPORT INFORMATION
  Report Type: Spontaneous
  Country: TW (occurrence: TW)
  Receive Date: 20220323
  Receipt Date: 20220323
  Transmission Date: 20220423
  Serious: Yes (Hospitalization)
  Sender: FDA-Public Use
  Company Number: TW-PFIZER INC-202200410617

PATIENT
  Age: 25 Year
  Sex: Male

DRUGS (1)
  1. KETAMINE HYDROCHLORIDE [Suspect]
     Active Substance: KETAMINE HYDROCHLORIDE
     Dosage: UNK

REACTIONS (2)
  - Urinary tract disorder [Recovered/Resolved]
  - Urinary tract infection [Recovered/Resolved]
